FAERS Safety Report 7541261-X (Version None)
Quarter: 2011Q2

REPORT INFORMATION
  Report Type: 
  Country: None (occurrence: None)
  Receive Date: 20110610
  Receipt Date: 20110606
  Transmission Date: 20111010
  Serious: Yes (Hospitalization)
  Sender: FDA-Public Use
  Company Number: IT-ABBOTT-11P-083-0730656-00

PATIENT
  Age: 24 Year
  Sex: Male

DRUGS (4)
  1. ZYPREXA [Suspect]
     Indication: PERSONALITY DISORDER
     Route: 048
     Dates: start: 20110525, end: 20110525
  2. ZYPREXA [Suspect]
     Indication: SUICIDE ATTEMPT
     Route: 048
     Dates: start: 20110301, end: 20110524
  3. DEPAKENE [Suspect]
     Indication: SUICIDE ATTEMPT
     Dosage: EXTENDED RELEASE
     Route: 048
     Dates: start: 20110301, end: 20110524
  4. DEPAKENE [Suspect]
     Indication: PERSONALITY DISORDER
     Dosage: EXTENDED RELEASE, ONCE
     Route: 048
     Dates: start: 20110525, end: 20110525

REACTIONS (4)
  - ASPARTATE AMINOTRANSFERASE INCREASED [None]
  - BLOOD CREATINE PHOSPHOKINASE MB INCREASED [None]
  - SOPOR [None]
  - MULTIPLE DRUG OVERDOSE INTENTIONAL [None]
